FAERS Safety Report 18586230 (Version 1)
Quarter: 2020Q4

REPORT INFORMATION
  Report Type: Spontaneous
  Country: US (occurrence: US)
  Receive Date: 20201204
  Receipt Date: 20201204
  Transmission Date: 20210114
  Serious: Yes (Death)
  Sender: FDA-Public Use
  Company Number: None

PATIENT
  Age: 36 Year
  Sex: Female
  Weight: 100 kg

DRUGS (1)
  1. TECARTUS [Suspect]
     Active Substance: BREXUCABTAGENE AUTOLEUCEL
     Indication: MANTLE CELL LYMPHOMA
     Dosage: ?          OTHER DOSE:UP TO 2X10^8 ANTIC;OTHER FREQUENCY:1;OTHER ROUTE:IV?
     Dates: start: 20201117, end: 20201117

REACTIONS (1)
  - Death [None]

NARRATIVE: CASE EVENT DATE: 20201125
